FAERS Safety Report 25614820 (Version 1)
Quarter: 2025Q3

REPORT INFORMATION
  Report Type: Report from Study
  Country: CO (occurrence: CO)
  Receive Date: 20250729
  Receipt Date: 20250729
  Transmission Date: 20251021
  Serious: Yes (Death, Hospitalization)
  Sender: UCB
  Company Number: CO-UCBSA-2025045329

PATIENT
  Age: 66 Year
  Sex: Male

DRUGS (1)
  1. ROTIGOTINE [Suspect]
     Active Substance: ROTIGOTINE
     Indication: Parkinson^s disease
     Dosage: 8 MILLIGRAM, ONCE DAILY (QD)
     Route: 062
     Dates: start: 20241019, end: 20250509

REACTIONS (6)
  - Death [Fatal]
  - Hip surgery [Unknown]
  - Gastritis [Unknown]
  - Surgery [Unknown]
  - Fall [Unknown]
  - Off label use [Unknown]

NARRATIVE: CASE EVENT DATE: 20241019
